FAERS Safety Report 5461027-4 (Version None)
Quarter: 2007Q3

REPORT INFORMATION
  Report Type: 
  Country: None (occurrence: None)
  Receive Date: 20070822
  Receipt Date: 20061107
  Transmission Date: 20080115
  Serious: Yes (Other)
  Sender: FDA-Public Use
  Company Number: 2006105197

PATIENT
  Age: 74 Year
  Sex: Female
  Weight: 64.8644 kg

DRUGS (8)
  1. NORVASC [Suspect]
     Indication: HYPERTENSION
  2. ATENOLOL [Suspect]
     Indication: HYPERTENSION
     Dosage: 25 MG (25 MG,1 IN 1 D), ORAL
     Route: 048
     Dates: start: 20060125, end: 20060821
  3. LOTREL [Suspect]
     Indication: HYPERTENSION
     Dosage: 5 / 10 MG (1 IN 1 D), ORAL
     Route: 048
     Dates: start: 20060821
  4. COSOPT [Concomitant]
  5. XALATAN [Concomitant]
  6. ASPIRIN [Concomitant]
  7. CALCIUM WITH VITAMIN D (CALCIUM PHOSPHATE, CALCIUM SODIUM LACTATE, ERG [Concomitant]
  8. PRESERVISION (MINERALS NOS, VITAMINS NOS, XANTHOPHYLL)C [Concomitant]

REACTIONS (2)
  - BLOOD PRESSURE INADEQUATELY CONTROLLED [None]
  - HYPOTENSION [None]
